FAERS Safety Report 8576854-4 (Version None)
Quarter: 2012Q3

REPORT INFORMATION
  Report Type: 
  Country: None (occurrence: None)
  Receive Date: 20120807
  Receipt Date: 20120725
  Transmission Date: 20120928
  Serious: No
  Sender: FDA-Public Use
  Company Number: US-ASTRAZENECA-2012SE53247

PATIENT
  Age: 40 Year
  Sex: Female

DRUGS (5)
  1. SEROQUEL XR [Suspect]
     Indication: ANXIETY
     Route: 048
  2. SEROQUEL XR [Suspect]
     Indication: SLEEP DISORDER
     Route: 048
  3. SEROQUEL XR [Suspect]
     Indication: DEPRESSION
     Route: 048
  4. CRESTOR [Suspect]
     Route: 048
  5. SEROQUEL XR [Suspect]
     Indication: BIPOLAR DISORDER
     Route: 048

REACTIONS (3)
  - DIABETES MELLITUS [None]
  - EYE PAIN [None]
  - VISUAL ACUITY REDUCED [None]
